FAERS Safety Report 10461308 (Version 1)
Quarter: 2014Q3

REPORT INFORMATION
  Report Type: Spontaneous
  Country: US (occurrence: None)
  Receive Date: 20140917
  Receipt Date: 20140917
  Transmission Date: 20150326
  Serious: Yes (Other)
  Sender: FDA-Public Use
  Company Number: None

PATIENT
  Age: 57 Year
  Sex: Female
  Weight: 0 kg

DRUGS (6)
  1. COPAXONE [Suspect]
     Active Substance: GLATIRAMER ACETATE
     Dosage: 40 MG SUB-Q, 3 TIMES PER WEEK, SUB-Q INJECTION
     Route: 058
     Dates: start: 20120808
  2. AMITRIPTYLINE [Concomitant]
     Active Substance: AMITRIPTYLINE
  3. VITAMIN D [Concomitant]
     Active Substance: CHOLECALCIFEROL
  4. TOPAMAX [Concomitant]
     Active Substance: TOPIRAMATE
  5. MAXALT [Concomitant]
     Active Substance: RIZATRIPTAN BENZOATE
  6. ASPIRIN. [Concomitant]
     Active Substance: ASPIRIN

REACTIONS (2)
  - Dry eye [None]
  - Cataract [None]

NARRATIVE: CASE EVENT DATE: 20140916
